FAERS Safety Report 7414974-8 (Version None)
Quarter: 2011Q2

REPORT INFORMATION
  Report Type: 
  Country: None (occurrence: None)
  Receive Date: 20110405
  Receipt Date: 20110323
  Transmission Date: 20111010
  Serious: Yes (Other)
  Sender: FDA-Public Use
  Company Number: FK201100430

PATIENT
  Age: 1 Month
  Sex: Female
  Weight: 4.1 kg

DRUGS (2)
  1. ACYCLOVIR SODIUM [Suspect]
     Indication: APPARENT LIFE THREATENING EVENT
     Dosage: 80 MG, 8 HR, INTRAVENOUS DRIP
     Route: 041
     Dates: start: 20110311, end: 20110314
  2. CEFTRIAXONE [Concomitant]

REACTIONS (4)
  - ELECTROCARDIOGRAM ST SEGMENT DEPRESSION [None]
  - ELECTROCARDIOGRAM T WAVE AMPLITUDE DECREASED [None]
  - SINUS TACHYCARDIA [None]
  - LETHARGY [None]
